FAERS Safety Report 16551991 (Version 4)
Quarter: 2019Q3

REPORT INFORMATION
  Report Type: Report from Study
  Country: US (occurrence: US)
  Receive Date: 20190710
  Receipt Date: 20190826
  Transmission Date: 20191004
  Serious: Yes (Hospitalization, Other)
  Sender: FDA-Public Use
  Company Number: US-GILEAD-2019-0410395

PATIENT
  Age: 10 Year
  Sex: Female
  Weight: 35 kg

DRUGS (10)
  1. OMEPRAZOLE. [Concomitant]
     Active Substance: OMEPRAZOLE
  2. ONDANSETRON [Concomitant]
     Active Substance: ONDANSETRON
  3. CYPROHEPTADINE. [Concomitant]
     Active Substance: CYPROHEPTADINE
  4. AMBRISENTAN [Suspect]
     Active Substance: AMBRISENTAN
     Indication: PULMONARY HYPERTENSION
  5. AMBRISENTAN [Suspect]
     Active Substance: AMBRISENTAN
     Indication: PORTAL HYPERTENSION
     Dosage: 5 MG, QD
     Route: 065
     Dates: start: 20190423
  6. FEROSUL [Concomitant]
  7. REMODULIN [Concomitant]
     Active Substance: TREPROSTINIL
  8. SILDENAFIL. [Suspect]
     Active Substance: SILDENAFIL
     Indication: PORTAL HYPERTENSION
     Dosage: 20 MG, TID
     Route: 065
     Dates: start: 20190425
  9. LASIX [Concomitant]
     Active Substance: FUROSEMIDE
  10. GUANFACINE. [Concomitant]
     Active Substance: GUANFACINE

REACTIONS (3)
  - Staphylococcal bacteraemia [Recovered/Resolved]
  - Off label use [Not Recovered/Not Resolved]
  - Catheter placement [Unknown]

NARRATIVE: CASE EVENT DATE: 20190423
